FAERS Safety Report 12738949 (Version 1)
Quarter: 2016Q3

REPORT INFORMATION
  Report Type: Spontaneous
  Country: US (occurrence: US)
  Receive Date: 20160912
  Receipt Date: 20160912
  Transmission Date: 20161109
  Serious: Yes (Other)
  Sender: FDA-Public Use
  Company Number: US-SMITH AND NEPHEW, INC-2016SMT00763

PATIENT
  Age: 56 Year
  Sex: Female

DRUGS (2)
  1. REGRANEX [Suspect]
     Active Substance: BECAPLERMIN
     Indication: WOUND
     Dosage: UNK
     Route: 061
     Dates: start: 201608, end: 20160825
  2. LASIX [Concomitant]
     Active Substance: FUROSEMIDE
     Dosage: 20 MG, 1X/DAY

REACTIONS (10)
  - Erythema [Recovered/Resolved]
  - Application site pain [Not Recovered/Not Resolved]
  - Swelling [Unknown]
  - Off label use [Recovered/Resolved]
  - Infection [Not Recovered/Not Resolved]
  - Gait disturbance [Unknown]
  - Skin exfoliation [Unknown]
  - Wound secretion [Recovering/Resolving]
  - Application site pain [Unknown]
  - Surgery [Recovered/Resolved]

NARRATIVE: CASE EVENT DATE: 201608
